FAERS Safety Report 23123303 (Version 1)
Quarter: 2023Q4

REPORT INFORMATION
  Report Type: Spontaneous
  Country: US (occurrence: US)
  Receive Date: 20231030
  Receipt Date: 20231030
  Transmission Date: 20240109
  Serious: No
  Sender: FDA-Public Use
  Company Number: US-OPELLA-2023OHG009760

PATIENT

DRUGS (1)
  1. SELENIUM SULFIDE [Suspect]
     Active Substance: SELENIUM SULFIDE
     Indication: Product used for unknown indication
     Route: 065

REACTIONS (3)
  - Pruritus [Unknown]
  - Product odour abnormal [Unknown]
  - Hair texture abnormal [Unknown]
